FAERS Safety Report 4474235-6 (Version None)
Quarter: 2004Q4

REPORT INFORMATION
  Report Type: 
  Country: None (occurrence: None)
  Receive Date: 20041012
  Receipt Date: 20040927
  Transmission Date: 20050328
  Serious: Yes (Death, Life-Threatening)
  Sender: FDA-Public Use
  Company Number: 2004-BP-04107NB

PATIENT
  Age: 44 Year
  Sex: Male

DRUGS (5)
  1. MOBIC [Suspect]
     Indication: NEOPLASM
     Dosage: 10 MG
     Route: 048
     Dates: start: 20040330, end: 20040410
  2. TAXOL [Suspect]
     Indication: LUNG ADENOCARCINOMA
     Dosage: 105 MG
     Route: 042
     Dates: start: 20040330, end: 20040306
  3. PARAPLATIN [Concomitant]
  4. MS CONTIN [Concomitant]
  5. PRIMPERAN TAB [Concomitant]

REACTIONS (5)
  - ACUTE RESPIRATORY DISTRESS SYNDROME [None]
  - LUNG NEOPLASM MALIGNANT [None]
  - LYMPHOCYTE STIMULATION TEST POSITIVE [None]
  - METASTASIS [None]
  - OFF LABEL USE [None]
